FAERS Safety Report 4832470-9 (Version None)
Quarter: 2005Q4

REPORT INFORMATION
  Report Type: 
  Country: None (occurrence: None)
  Receive Date: 20051121
  Receipt Date: 20050519
  Transmission Date: 20060501
  Serious: No
  Sender: FDA-Public Use
  Company Number: US-BRISTOL-MYERS SQUIBB COMPANY-12976148

PATIENT

DRUGS (1)
  1. VEPESID [Suspect]

REACTIONS (1)
  - ACCIDENTAL EXPOSURE [None]
